FAERS Safety Report 4572428-0 (Version None)
Quarter: 2005Q1

REPORT INFORMATION
  Report Type: 
  Country: None (occurrence: None)
  Receive Date: 20050207
  Receipt Date: 20050127
  Transmission Date: 20050727
  Serious: Yes (Death)
  Sender: FDA-Public Use
  Company Number: ZA-GLAXOSMITHKLINE-B0369582A

PATIENT
  Age: 40 Year
  Sex: Male
  Weight: 99 kg

DRUGS (3)
  1. COMBIVIR [Suspect]
     Indication: SYSTEMIC ANTIVIRAL TREATMENT
     Route: 048
     Dates: start: 20031116, end: 20041220
  2. HERBAL MEDICINE [Suspect]
  3. EFAVIRENZ [Concomitant]
     Dosage: 600MG PER DAY
     Route: 048
     Dates: start: 20031116, end: 20041220

REACTIONS (4)
  - BLOOD CREATINE INCREASED [None]
  - BLOOD POTASSIUM INCREASED [None]
  - BLOOD UREA INCREASED [None]
  - RENAL FAILURE [None]
